FAERS Safety Report 20351866 (Version 1)
Quarter: 2022Q1

REPORT INFORMATION
  Report Type: Spontaneous
  Country: US (occurrence: None)
  Receive Date: 20220118
  Receipt Date: 20220118
  Transmission Date: 20220423
  Serious: Yes (Other)
  Sender: FDA-Public Use
  Company Number: None

PATIENT
  Age: 50 Year
  Sex: Female
  Weight: 49.4 kg

DRUGS (1)
  1. ESTRADIOL [Suspect]
     Active Substance: ESTRADIOL
     Indication: Hormone replacement therapy
     Dosage: FREQUENCY : TWICE A WEEK;?
     Route: 062

REACTIONS (4)
  - Abdominal distension [None]
  - Dyspepsia [None]
  - Asthenia [None]
  - Blood thyroid stimulating hormone abnormal [None]
